FAERS Safety Report 18014806 (Version 6)
Quarter: 2020Q4

REPORT INFORMATION
  Report Type: Spontaneous
  Country: US (occurrence: US)
  Receive Date: 20200713
  Receipt Date: 20201105
  Transmission Date: 20210113
  Serious: No
  Sender: FDA-Public Use
  Company Number: US-BIOGEN-2020BI00897205

PATIENT
  Sex: Male

DRUGS (1)
  1. TYSABRI [Suspect]
     Active Substance: NATALIZUMAB
     Indication: MULTIPLE SCLEROSIS
     Route: 065
     Dates: start: 20171024

REACTIONS (8)
  - Limb discomfort [Unknown]
  - Thyroid disorder [Unknown]
  - Hoffmann^s sign [Not Recovered/Not Resolved]
  - Gait disturbance [Not Recovered/Not Resolved]
  - Fatigue [Unknown]
  - Arthropathy [Not Recovered/Not Resolved]
  - Clonus [Not Recovered/Not Resolved]
  - Multiple sclerosis [Unknown]
